FAERS Safety Report 7959319-X (Version None)
Quarter: 2011Q4

REPORT INFORMATION
  Report Type: 
  Country: None (occurrence: None)
  Receive Date: 20111206
  Receipt Date: 20111202
  Transmission Date: 20120403
  Serious: Yes (Other)
  Sender: FDA-Public Use
  Company Number: IE-PFIZER INC-2011006073

PATIENT
  Age: 41 Year
  Sex: Female

DRUGS (4)
  1. PROZAC [Interacting]
     Dosage: 80 MG, UNK
  2. VARENICLINE TARTRATE [Interacting]
     Dosage: UNK
     Dates: start: 20101001
  3. PROZAC [Interacting]
     Dosage: 40 MG, UNK
  4. VARENICLINE TARTRATE [Suspect]
     Indication: SMOKING CESSATION THERAPY
     Dosage: UNK
     Dates: start: 20100801

REACTIONS (5)
  - COGNITIVE DISORDER [None]
  - AMNESIA [None]
  - AGGRESSION [None]
  - DRUG INTERACTION [None]
  - DISORIENTATION [None]
